FAERS Safety Report 15968080 (Version 2)
Quarter: 2019Q1

REPORT INFORMATION
  Report Type: Spontaneous
  Country: US (occurrence: US)
  Receive Date: 20190215
  Receipt Date: 20190322
  Transmission Date: 20190418
  Serious: Yes (Other)
  Sender: FDA-Public Use
  Company Number: PHEH2019US006300

PATIENT
  Age: 32 Year
  Sex: Male

DRUGS (1)
  1. COSENTYX [Suspect]
     Active Substance: SECUKINUMAB
     Indication: PSORIASIS
     Dosage: 300 MG, QMO (2X150 MG PENS)
     Route: 058
     Dates: start: 201810

REACTIONS (2)
  - Chronic kidney disease [Unknown]
  - Nephrocalcinosis [Unknown]

NARRATIVE: CASE EVENT DATE: 201902
